FAERS Safety Report 11081834 (Version 1)
Quarter: 2015Q2

REPORT INFORMATION
  Report Type: Spontaneous
  Country: BR (occurrence: BR)
  Receive Date: 20150501
  Receipt Date: 20150501
  Transmission Date: 20150821
  Serious: Yes (Other)
  Sender: FDA-Public Use
  Company Number: BR-PFIZER INC-2015144024

PATIENT
  Age: 67 Year
  Sex: Male
  Weight: 68 kg

DRUGS (4)
  1. LIPITOR [Suspect]
     Active Substance: ATORVASTATIN CALCIUM
     Indication: SPINAL DISORDER
     Dosage: UNSPECIFIED DOSE, EVERY 3 HOURS
     Route: 048
     Dates: start: 201501
  2. ALDACTONE [Concomitant]
     Active Substance: SPIRONOLACTONE
     Indication: SPINAL DISORDER
     Dosage: UNK
     Dates: start: 201501
  3. ANCORON [Concomitant]
     Active Substance: AMIODARONE HYDROCHLORIDE
     Indication: SPINAL DISORDER
     Dosage: UNSPECIFIED DOSE, EVERY 6 HOURS
     Dates: start: 201501
  4. DEXAMETHASONE. [Concomitant]
     Active Substance: DEXAMETHASONE
     Indication: SPINAL DISORDER
     Dosage: UNSPECIFIED DOSE, EVERY 6 HOURS
     Dates: start: 201501

REACTIONS (2)
  - Paralysis [Unknown]
  - Inappropriate schedule of drug administration [Unknown]

NARRATIVE: CASE EVENT DATE: 201501
